FAERS Safety Report 4279673-2 (Version None)
Quarter: 2004Q1

REPORT INFORMATION
  Report Type: 
  Country: None (occurrence: None)
  Receive Date: 20040123
  Receipt Date: 20040121
  Transmission Date: 20041129
  Serious: Yes (Death)
  Sender: FDA-Public Use
  Company Number: KII-2002-0002125

PATIENT
  Sex: Male

DRUGS (1)
  1. OXYCONTIN [Suspect]

REACTIONS (2)
  - INJURY [None]
  - ROAD TRAFFIC ACCIDENT [None]
